FAERS Safety Report 8514200-2 (Version None)
Quarter: 2012Q3

REPORT INFORMATION
  Report Type: 
  Country: None (occurrence: None)
  Receive Date: 20120717
  Receipt Date: 20120711
  Transmission Date: 20120928
  Serious: Yes (Hospitalization, Other)
  Sender: FDA-Public Use
  Company Number: BR-PFIZER INC-2012168042

PATIENT
  Age: 55 Year
  Sex: Female

DRUGS (5)
  1. ATENOLOL AND CHLORTHALIDONE [Concomitant]
     Indication: HYPERTENSION
     Dosage: UNK
  2. ATORVASTATIN CALCIUM [Suspect]
     Indication: BLOOD CHOLESTEROL
     Dosage: 20 MG, 1X/DAY
     Route: 048
     Dates: start: 20080711
  3. VENLAFAXINE HYDROCHLORIDE [Concomitant]
     Indication: DEPRESSION
     Dosage: UNK
  4. NEXIUM [Concomitant]
     Indication: GASTRIC DISORDER
     Dosage: UNK
  5. TIBOLONE [Concomitant]
     Indication: HORMONE REPLACEMENT THERAPY
     Dosage: UNK

REACTIONS (5)
  - GASTROINTESTINAL PAIN [None]
  - INTESTINAL HAEMORRHAGE [None]
  - DIVERTICULITIS [None]
  - ABDOMINAL PAIN [None]
  - ABDOMINAL WALL HAEMORRHAGE [None]
